FAERS Safety Report 6730767-9 (Version None)
Quarter: 2010Q2

REPORT INFORMATION
  Report Type: 
  Country: None (occurrence: None)
  Receive Date: 20100518
  Receipt Date: 20100512
  Transmission Date: 20101027
  Serious: Yes (Hospitalization)
  Sender: FDA-Public Use
  Company Number: NL-BAYER-201025036GPV

PATIENT
  Age: 45 Year
  Sex: Female

DRUGS (3)
  1. SORAFENIB [Suspect]
     Indication: NEOPLASM
     Dosage: TOTAL DAILY DOSE: 7000 MG
     Route: 048
     Dates: start: 20080701, end: 20080722
  2. CARBOPLATIN [Suspect]
     Indication: NEOPLASM
     Dosage: ONCE PER 3 WEEKS
     Route: 042
     Dates: start: 20080701, end: 20080723
  3. GEMCITABINE HCL [Suspect]
     Indication: NEOPLASM
     Dosage: ONCE PER 3 WEEKS
     Route: 042
     Dates: start: 20080701, end: 20080722

REACTIONS (2)
  - ANAL ABSCESS [None]
  - PYREXIA [None]
